FAERS Safety Report 23718815 (Version 2)
Quarter: 2024Q2

REPORT INFORMATION
  Report Type: Report from Study
  Country: NL (occurrence: NL)
  Receive Date: 20240408
  Receipt Date: 20240416
  Transmission Date: 20240716
  Serious: Yes (Other)
  Sender: FDA-Public Use
  Company Number: NL-MYLANLABS-2024M1030900

PATIENT
  Sex: Female

DRUGS (1)
  1. GLATIRAMER ACETATE [Suspect]
     Active Substance: GLATIRAMER ACETATE
     Indication: Multiple sclerosis
     Dosage: UNK, 3XW (3.00 X PER WEEK)
     Route: 058

REACTIONS (3)
  - Multiple sclerosis relapse [Unknown]
  - Paraesthesia [Unknown]
  - Product dose omission in error [Unknown]
